FAERS Safety Report 9276461 (Version 1)
Quarter: 2013Q2

REPORT INFORMATION
  Report Type: Spontaneous
  Country: UY (occurrence: UY)
  Receive Date: 20130507
  Receipt Date: 20130507
  Transmission Date: 20140414
  Serious: Yes (Other)
  Sender: FDA-Public Use
  Company Number: PHHY2013UY044343

PATIENT
  Age: 68 Year
  Sex: Female
  Weight: 40.36 kg

DRUGS (1)
  1. RECLAST [Suspect]
     Indication: OSTEOPOROSIS
     Dosage: YEARLY
     Route: 042
     Dates: start: 20120330

REACTIONS (2)
  - Osteonecrosis of jaw [Unknown]
  - Bone disorder [Unknown]
